FAERS Safety Report 6276112-7 (Version None)
Quarter: 2009Q3

REPORT INFORMATION
  Report Type: 
  Country: None (occurrence: None)
  Receive Date: 20090717
  Receipt Date: 20090717
  Transmission Date: 20100115
  Serious: No
  Sender: FDA-Public Use
  Company Number: None

PATIENT
  Age: 85 Year
  Sex: Female
  Weight: 68.0396 kg

DRUGS (1)
  1. CLINDAMYCIN [Suspect]
     Dosage: 150 MG 4 X DAY
     Dates: start: 20090301

REACTIONS (5)
  - CYSTITIS [None]
  - INFECTION [None]
  - STOMATITIS [None]
  - URINARY TRACT INFECTION [None]
  - VAGINAL INFECTION [None]
